FAERS Safety Report 21583428 (Version 1)
Quarter: 2022Q4

REPORT INFORMATION
  Report Type: Spontaneous
  Country: US (occurrence: None)
  Receive Date: 20221110
  Receipt Date: 20221110
  Transmission Date: 20230113
  Serious: Yes (Death)
  Sender: FDA-Public Use
  Company Number: None

PATIENT
  Sex: Female

DRUGS (8)
  1. DALFAMPRIDINE [Suspect]
     Active Substance: DALFAMPRIDINE
     Indication: Multiple sclerosis
     Route: 048
     Dates: start: 20181121
  2. CHOLESTYRAM POW [Concomitant]
  3. FLONASE ALGY SPR [Concomitant]
  4. MELOXICAM TAB [Concomitant]
  5. NEUTRONTIN TAB [Concomitant]
  6. TIZANIDINE TAB [Concomitant]
  7. TOBRA/DEXAMASE SUS [Concomitant]
  8. TRAMADOL HCL [Concomitant]

REACTIONS (1)
  - Death [None]
